FAERS Safety Report 4572956-8 (Version None)
Quarter: 2005Q1

REPORT INFORMATION
  Report Type: 
  Country: None (occurrence: None)
  Receive Date: 20050203
  Receipt Date: 20050124
  Transmission Date: 20050727
  Serious: Yes (Life-Threatening, Hospitalization, Other)
  Sender: FDA-Public Use
  Company Number: 2004EU000823

PATIENT
  Age: 57 Year
  Sex: Male

DRUGS (2)
  1. PROTOPIC [Suspect]
     Indication: BALANITIS
     Dosage: 0.10%, D, TOPICAL
     Route: 061
     Dates: start: 20031103, end: 20040113
  2. DERMOVATE (CLOBETASOL PROPIONATE) [Concomitant]

REACTIONS (4)
  - HYPERKERATOSIS [None]
  - PENIS CARCINOMA [None]
  - PENIS DISORDER [None]
  - SQUAMOUS CELL CARCINOMA [None]
